FAERS Safety Report 5007670-8 (Version None)
Quarter: 2006Q2

REPORT INFORMATION
  Report Type: 
  Country: None (occurrence: None)
  Receive Date: 20060522
  Receipt Date: 20060502
  Transmission Date: 20061013
  Serious: Yes (Hospitalization)
  Sender: FDA-Public Use
  Company Number: DE-ROCHE-446752

PATIENT
  Age: 57 Year
  Sex: Female
  Weight: 71 kg

DRUGS (6)
  1. GRANISETRON HYDROCHLORIDE [Suspect]
     Indication: PROPHYLAXIS
     Route: 042
     Dates: start: 20060404, end: 20060404
  2. DOCETAXEL [Suspect]
     Indication: BREAST CANCER
     Route: 042
     Dates: start: 20060404, end: 20060404
  3. GEMCITABINE [Suspect]
     Indication: BREAST CANCER
     Route: 042
     Dates: start: 20060404, end: 20060504
  4. GEMCITABINE [Suspect]
     Route: 042
     Dates: start: 20060411, end: 20060411
  5. DEXAMETHASONE [Suspect]
     Indication: PROPHYLAXIS
     Route: 048
     Dates: start: 20060403, end: 20060405
  6. GRANOCYTE [Suspect]
     Indication: PROPHYLAXIS
     Route: 058
     Dates: start: 20060408, end: 20060412

REACTIONS (3)
  - DIARRHOEA [None]
  - FATIGUE [None]
  - MYALGIA [None]
